FAERS Safety Report 12754934 (Version 3)
Quarter: 2016Q4

REPORT INFORMATION
  Report Type: Spontaneous
  Country: KR (occurrence: KR)
  Receive Date: 20160916
  Receipt Date: 20161107
  Transmission Date: 20170207
  Serious: Yes (Hospitalization)
  Sender: FDA-Public Use
  Company Number: KR-TAKEDA-2016MPI007910

PATIENT
  Age: 66 Year
  Sex: Female
  Weight: 48 kg

DRUGS (21)
  1. PREDNISONE. [Suspect]
     Active Substance: PREDNISONE
     Indication: PLASMA CELL MYELOMA
     Dosage: 90 MG, QD
     Route: 048
     Dates: start: 20160401
  2. MELPHALAN [Suspect]
     Active Substance: MELPHALAN
     Indication: PLASMA CELL MYELOMA
     Dosage: 14 MG, QD
     Route: 048
     Dates: start: 20160401
  3. GABAPENTIN. [Concomitant]
     Active Substance: GABAPENTIN
     Indication: PERIPHERAL SENSORY NEUROPATHY
     Dosage: 200 MG, TID
     Route: 048
     Dates: start: 20160511, end: 20160531
  4. KCL [Concomitant]
     Active Substance: POTASSIUM CHLORIDE
     Indication: MINERAL SUPPLEMENTATION
     Dosage: UNK
     Route: 042
     Dates: start: 20160903, end: 20160903
  5. DICAMAX [Concomitant]
     Indication: OSTEOPOROSIS PROPHYLAXIS
     Dosage: 250 MG, UNK
     Route: 048
     Dates: start: 20160713
  6. PAMIDRONATE [Concomitant]
     Active Substance: PAMIDRONATE DISODIUM
     Indication: OSTEOPOROSIS PROPHYLAXIS
     Dosage: 45 MG, UNK
     Route: 042
     Dates: start: 20160330
  7. PANTOPRAZOLE [Concomitant]
     Active Substance: PANTOPRAZOLE SODIUM
     Indication: COLITIS
     Dosage: 40 MG, UNK
     Route: 042
     Dates: start: 20160902, end: 20160902
  8. GRASIN [Concomitant]
     Dosage: 300 ?G, UNK
     Route: 058
     Dates: start: 20160506, end: 20160506
  9. CEFEPIME [Concomitant]
     Active Substance: CEFEPIME HYDROCHLORIDE
     Indication: COLITIS
     Dosage: 2 G, BID
     Route: 042
     Dates: start: 20160902, end: 20160906
  10. POTASSIUM PHOSPHATES [Concomitant]
     Active Substance: POTASSIUM PHOSPHATE, DIBASIC\POTASSIUM PHOSPHATE, MONOBASIC
     Indication: HYPOPHOSPHATAEMIA
     Dosage: 80 ML, UNK
     Route: 042
     Dates: start: 20160903, end: 20160904
  11. AMLODIPINE [Concomitant]
     Active Substance: AMLODIPINE BESYLATE
     Indication: HYPERTENSION
     Dosage: 40 MG, UNK
     Route: 048
     Dates: start: 20160323
  12. TELMISARTAN. [Concomitant]
     Active Substance: TELMISARTAN
     Indication: HYPERTENSION
     Dosage: UNK
     Route: 048
     Dates: start: 20160323
  13. CIMETROPIUM BROMIDE [Concomitant]
     Active Substance: CIMETROPIUM BROMIDE
     Indication: COLITIS
     Dosage: 5 MG, UNK
     Route: 042
     Dates: start: 20160902, end: 20160902
  14. VELCADE [Suspect]
     Active Substance: BORTEZOMIB
     Indication: PLASMA CELL MYELOMA
     Dosage: 2 MG, QD
     Route: 058
     Dates: start: 20160401
  15. MECOBALAMIN [Concomitant]
     Active Substance: METHYLCOBALAMIN
     Indication: PERIPHERAL SENSORY NEUROPATHY
     Dosage: 500 ?G, TID
     Route: 048
     Dates: start: 20160511
  16. METRONIDAZOLE. [Concomitant]
     Active Substance: METRONIDAZOLE
     Indication: COLITIS
     Dosage: 500 MG, TID
     Route: 042
     Dates: start: 20160902, end: 20160906
  17. PREGABALIN. [Concomitant]
     Active Substance: PREGABALIN
     Indication: PERIPHERAL SENSORY NEUROPATHY
     Dosage: 75 MG, BID
     Route: 048
     Dates: start: 20160601
  18. ACYCLOVIR                          /00587301/ [Concomitant]
     Active Substance: ACYCLOVIR
     Indication: PROPHYLAXIS
     Dosage: 200 MG, UNK
     Route: 048
     Dates: start: 20160401
  19. GRASIN [Concomitant]
     Indication: NEUTROPHIL COUNT DECREASED
     Dosage: 300 ?G, UNK
     Route: 058
     Dates: start: 20160429, end: 20160429
  20. KCL [Concomitant]
     Active Substance: POTASSIUM CHLORIDE
     Dosage: UNK
     Route: 042
     Dates: start: 20160904, end: 20160904
  21. MAGNESIUM SULFATE. [Concomitant]
     Active Substance: MAGNESIUM SULFATE
     Indication: MINERAL SUPPLEMENTATION
     Dosage: 2 G, UNK
     Route: 042
     Dates: start: 20160903, end: 20160904

REACTIONS (6)
  - Neutrophil count decreased [Unknown]
  - Hypophosphataemia [Unknown]
  - Anaemia [Unknown]
  - Hypoalbuminaemia [Unknown]
  - Peripheral sensory neuropathy [Unknown]
  - Colitis [Recovered/Resolved]

NARRATIVE: CASE EVENT DATE: 20160429
